FAERS Safety Report 4590080-5 (Version None)
Quarter: 2005Q1

REPORT INFORMATION
  Report Type: 
  Country: None (occurrence: None)
  Receive Date: 20050217
  Receipt Date: 20050217
  Transmission Date: 20050727
  Serious: Yes (Other)
  Sender: FDA-Public Use
  Company Number: None

PATIENT
  Age: 83 Year
  Sex: Male
  Weight: 72.4 kg

DRUGS (20)
  1. DOXYCYCLINE [Suspect]
  2. HYPROMELLOSE [Concomitant]
  3. BEER LIQUID [Concomitant]
  4. TERAZOSIN HCL [Concomitant]
  5. FLUOCINOLONE ACETONIDE [Concomitant]
  6. ALOH/MGOH/SMTH XTRA STRENGTH [Concomitant]
  7. POTASSIUM CHLORIDE [Concomitant]
  8. NITROGLYCERIN [Concomitant]
  9. IPRATROPIUM BROMIDE [Concomitant]
  10. DUCUSATE SODIUM [Concomitant]
  11. ALBUTEROL SOLN (PREMIX) [Concomitant]
  12. MILK OF MAGNESIA [Concomitant]
  13. SERTRALINE HCL [Concomitant]
  14. PRIMIDONE [Concomitant]
  15. OMEPRAZOLE [Concomitant]
  16. MULTI-VITAMIN [Concomitant]
  17. FUROSEMIDE [Concomitant]
  18. DIGOXIN [Concomitant]
  19. ASPIRIN [Concomitant]
  20. ACETAMINOPHEN [Concomitant]

REACTIONS (1)
  - ABDOMINAL DISCOMFORT [None]
